FAERS Safety Report 9638402 (Version 1)
Quarter: 2013Q4

REPORT INFORMATION
  Report Type: Spontaneous
  Country: ES (occurrence: ES)
  Receive Date: 20131022
  Receipt Date: 20131022
  Transmission Date: 20140711
  Serious: Yes (Death)
  Sender: FDA-Public Use
  Company Number: ES-CUBIST PHARMACEUTICAL, INC.-2013CBST000967

PATIENT
  Sex: 0

DRUGS (3)
  1. CUBICIN [Suspect]
     Indication: STAPHYLOCOCCAL BACTERAEMIA
     Dosage: 10 MG/KG, UNK
     Route: 065
  2. CUBICIN [Suspect]
     Indication: SKIN INFECTION
  3. CUBICIN [Suspect]
     Indication: SOFT TISSUE INFECTION

REACTIONS (2)
  - Staphylococcal bacteraemia [Fatal]
  - Treatment failure [Unknown]
